FAERS Safety Report 7602732-0 (Version None)
Quarter: 2011Q2

REPORT INFORMATION
  Report Type: 
  Country: None (occurrence: None)
  Receive Date: 20110630
  Receipt Date: 20110630
  Transmission Date: 20111010
  Serious: Yes (Death, Hospitalization)
  Sender: FDA-Public Use
  Company Number: 11055RX

PATIENT
  Age: 54 Year
  Sex: Female
  Weight: 70 kg

DRUGS (17)
  1. TIOPRONIN OR PLACEBO [Concomitant]
  2. LANTUS [Concomitant]
  3. TOBRAMYCIN [Concomitant]
  4. VANCOMYCIN [Concomitant]
  5. MULTI-VITAMIN [Concomitant]
  6. CEFEPIME [Concomitant]
  7. SENNA [Concomitant]
  8. ZOCOR [Concomitant]
  9. THIOLA (TIOPRONIN) [Suspect]
     Indication: SUBARACHNOID HAEMORRHAGE
     Dosage: 1000 MG, 3 TIMES./DAY, ORAL
     Route: 048
     Dates: start: 20110425, end: 20110502
  10. THIOLA (TIOPRONIN) [Suspect]
     Indication: INTRACRANIAL ANEURYSM
     Dosage: 1000 MG, 3 TIMES./DAY, ORAL
     Route: 048
     Dates: start: 20110425, end: 20110502
  11. DUCOLAX PR [Concomitant]
  12. PROPOFOL INFUSION [Concomitant]
  13. ZANTEC [Suspect]
  14. PERIDEX [Concomitant]
  15. DUONEB INHALE [Concomitant]
  16. HEPARIN [Concomitant]
  17. CEREBYX [Concomitant]

REACTIONS (3)
  - VASOSPASM [None]
  - GENERAL PHYSICAL HEALTH DETERIORATION [None]
  - RESPIRATORY FAILURE [None]
